FAERS Safety Report 7525802-4 (Version None)
Quarter: 2011Q2

REPORT INFORMATION
  Report Type: 
  Country: None (occurrence: None)
  Receive Date: 20110606
  Receipt Date: 20110314
  Transmission Date: 20111010
  Serious: No
  Sender: FDA-Public Use
  Company Number: A0918022A

PATIENT
  Age: 14 Year
  Sex: Male

DRUGS (1)
  1. LAMICTAL [Suspect]
     Route: 065

REACTIONS (1)
  - LOCAL SWELLING [None]
